FAERS Safety Report 4906511-4 (Version None)
Quarter: 2006Q1

REPORT INFORMATION
  Report Type: 
  Country: None (occurrence: None)
  Receive Date: 20060209
  Receipt Date: 20060127
  Transmission Date: 20060701
  Serious: Yes (Other)
  Sender: FDA-Public Use
  Company Number: PHEH2006US01453

PATIENT
  Age: 70 Year
  Sex: Male

DRUGS (10)
  1. COUMADIN [Concomitant]
     Indication: ATRIAL FIBRILLATION
     Route: 048
     Dates: start: 20050601
  2. HEPARIN [Concomitant]
     Indication: ATRIAL FIBRILLATION
     Route: 058
     Dates: start: 20060119
  3. ACETYLSALICYLIC ACID SRT [Concomitant]
     Dosage: 81 MG, QD
     Route: 048
     Dates: start: 20060119
  4. PREDNISONE [Concomitant]
     Dosage: 5 MG, QD
     Route: 048
     Dates: start: 20060119
  5. ENALAPRIL [Concomitant]
     Indication: CARDIOVASCULAR DISORDER
     Dosage: 40 MG, QD
     Route: 048
     Dates: start: 19980101, end: 20030101
  6. ENALAPRIL [Concomitant]
     Dosage: 10 MG, QD
     Route: 048
     Dates: start: 20030101
  7. TOPROL-XL [Concomitant]
     Indication: CARDIOVASCULAR DISORDER
     Dosage: UNK, UNK
     Route: 048
     Dates: start: 19980101, end: 20060119
  8. DIGOXIN [Concomitant]
     Indication: CARDIOVASCULAR DISORDER
     Dosage: UNK, UNK
     Route: 048
     Dates: start: 19980101, end: 20060130
  9. ZOCOR [Concomitant]
     Dosage: 20 MG, QD
     Route: 048
  10. GLEEVEC [Suspect]
     Indication: CHRONIC MYELOID LEUKAEMIA
     Dosage: 400 MG, QD
     Route: 048
     Dates: start: 20030101

REACTIONS (7)
  - ASTHENIA [None]
  - ATRIAL FIBRILLATION [None]
  - CARDIOVERSION [None]
  - DRUG INTERACTION [None]
  - DYSPNOEA [None]
  - INFLUENZA LIKE ILLNESS [None]
  - MALAISE [None]
